FAERS Safety Report 5076315-3 (Version None)
Quarter: 2006Q3

REPORT INFORMATION
  Report Type: 
  Country: None (occurrence: None)
  Receive Date: 20060804
  Receipt Date: 20060725
  Transmission Date: 20061208
  Serious: Yes (Other)
  Sender: FDA-Public Use
  Company Number: 2006069083

PATIENT
  Age: 72 Year
  Sex: Female

DRUGS (2)
  1. MIGLITOL TABLET (MIGLITOL) [Suspect]
     Indication: DIABETES MELLITUS
     Dosage: 150 MG (50 MG, 3 IN 1 D), ORAL
     Route: 048
     Dates: start: 20060119, end: 20060421
  2. LIPITOR [Concomitant]

REACTIONS (2)
  - EPISTAXIS [None]
  - IRON DEFICIENCY ANAEMIA [None]
